FAERS Safety Report 4844905-6 (Version None)
Quarter: 2005Q4

REPORT INFORMATION
  Report Type: 
  Country: None (occurrence: None)
  Receive Date: 20051128
  Receipt Date: 20051111
  Transmission Date: 20060501
  Serious: Yes (Death)
  Sender: FDA-Public Use
  Company Number: CLOF-10150

PATIENT
  Age: 73 Year
  Sex: Male

DRUGS (11)
  1. CLOFARABINE [Suspect]
     Indication: ACUTE MYELOID LEUKAEMIA
     Dosage: 49.2 MG QD X 5 IV
     Route: 042
     Dates: start: 20050622, end: 20050626
  2. CYTARABINE [Suspect]
     Indication: ACUTE MYELOID LEUKAEMIA
     Dosage: 32.8 MG QD SC
     Route: 058
     Dates: start: 20050622, end: 20050630
  3. CEFEPIME [Concomitant]
  4. ACYCLOVIR [Concomitant]
  5. SOLU-MEDROL [Concomitant]
  6. NOREPINEPHRINE [Concomitant]
  7. AMIODARONE [Concomitant]
  8. TYLENOL [Concomitant]
  9. BENADRYL [Concomitant]
  10. CASPOFUNGIN [Concomitant]
  11. MIDAZOLAM [Concomitant]

REACTIONS (4)
  - CARDIO-RESPIRATORY ARREST [None]
  - MULTI-ORGAN FAILURE [None]
  - RENAL FAILURE ACUTE [None]
  - SEPSIS [None]
